FAERS Safety Report 6270950-2 (Version None)
Quarter: 2009Q3

REPORT INFORMATION
  Report Type: 
  Country: None (occurrence: None)
  Receive Date: 20090715
  Receipt Date: 20090706
  Transmission Date: 20100115
  Serious: Yes (Other)
  Sender: FDA-Public Use
  Company Number: 2009US002295

PATIENT
  Age: 50 Year
  Sex: Female

DRUGS (1)
  1. PROTOPIC [Suspect]
     Indication: ECZEMA
     Dosage: /D
     Dates: start: 20010101, end: 20060101

REACTIONS (1)
  - B-CELL LYMPHOMA STAGE III [None]
